FAERS Safety Report 8141001-X (Version None)
Quarter: 2012Q1

REPORT INFORMATION
  Report Type: 
  Country: None (occurrence: None)
  Receive Date: 20120216
  Receipt Date: 20120202
  Transmission Date: 20120608
  Serious: Yes (Other)
  Sender: FDA-Public Use
  Company Number: KR-ASTELLAS-2012US001761

PATIENT
  Age: 61 Year
  Sex: Female

DRUGS (2)
  1. TARCEVA [Suspect]
     Indication: NON-SMALL CELL LUNG CANCER METASTATIC
     Dosage: 150 MG, UID/QD
     Route: 048
  2. TARCEVA [Suspect]
     Dosage: 100 MG, UID/QD
     Route: 048

REACTIONS (2)
  - DERMATITIS ACNEIFORM [None]
  - ALOPECIA SCARRING [None]
